FAERS Safety Report 5309354-5 (Version None)
Quarter: 2007Q1

REPORT INFORMATION
  Report Type: 
  Country: None (occurrence: None)
  Receive Date: 20070201
  Receipt Date: 20061228
  Transmission Date: 20070707
  Serious: No
  Sender: FDA-Public Use
  Company Number: 2006PV027514

PATIENT
  Age: 76 Year
  Sex: Female
  Weight: 58.9676 kg

DRUGS (3)
  1. BYETTA [Suspect]
     Indication: DIABETES MELLITUS NON-INSULIN-DEPENDENT
     Dosage: 10 MCG; BID; SC
     Route: 058
     Dates: start: 20051001
  2. ACTOS [Concomitant]
  3. LANTUS [Concomitant]

REACTIONS (5)
  - ALOPECIA [None]
  - ANOREXIA [None]
  - BLOOD GLUCOSE DECREASED [None]
  - DYSGEUSIA [None]
  - WEIGHT DECREASED [None]
